FAERS Safety Report 19141005 (Version 1)
Quarter: 2021Q2

REPORT INFORMATION
  Report Type: Spontaneous
  Country: GB (occurrence: GB)
  Receive Date: 20210415
  Receipt Date: 20210415
  Transmission Date: 20210717
  Serious: Yes (Hospitalization, Other)
  Sender: FDA-Public Use
  Company Number: GB-DEXPHARM-20210489

PATIENT
  Age: 56 Year
  Sex: Female

DRUGS (9)
  1. ACCORD?UK LAMOTRIGINE [Concomitant]
     Active Substance: LAMOTRIGINE
  2. VENTOLIN [Concomitant]
     Active Substance: ALBUTEROL SULFATE
  3. PREDNISOLONE. [Concomitant]
     Active Substance: PREDNISOLONE
  4. DEXCEL PHARMA OMEPRAZOLE [Suspect]
     Active Substance: OMEPRAZOLE
     Indication: DYSPEPSIA
     Route: 048
     Dates: start: 20210323, end: 20210330
  5. PARACETAMOL [Concomitant]
     Active Substance: ACETAMINOPHEN
  6. CODEINE PHOSPHATE [Concomitant]
     Active Substance: CODEINE PHOSPHATE
  7. IBUPROFEN. [Concomitant]
     Active Substance: IBUPROFEN
  8. MEBEVERINE HYDROCHLORIDE [Concomitant]
     Active Substance: MEBEVERINE HYDROCHLORIDE
  9. CLARITHROMYCIN CITRATE [Concomitant]
     Active Substance: CLARITHROMYCIN CITRATE

REACTIONS (1)
  - Dyspnoea [Not Recovered/Not Resolved]

NARRATIVE: CASE EVENT DATE: 20210325
